FAERS Safety Report 4475672-6 (Version None)
Quarter: 2004Q4

REPORT INFORMATION
  Report Type: 
  Country: None (occurrence: None)
  Receive Date: 20041015
  Receipt Date: 20041004
  Transmission Date: 20050328
  Serious: Yes (Other)
  Sender: FDA-Public Use
  Company Number: GB-JNJFOC-20041001535

PATIENT
  Sex: Male

DRUGS (2)
  1. DAKTARIN [Suspect]
     Route: 065
  2. DAKTARIN [Suspect]
     Route: 065

REACTIONS (5)
  - BLOODY DISCHARGE [None]
  - DIZZINESS [None]
  - ERYTHEMA [None]
  - LOCALISED SKIN REACTION [None]
  - OEDEMA PERIPHERAL [None]
